FAERS Safety Report 4684188-3 (Version None)
Quarter: 2005Q2

REPORT INFORMATION
  Report Type: 
  Country: None (occurrence: None)
  Receive Date: 20050607
  Receipt Date: 20050524
  Transmission Date: 20051028
  Serious: Yes (Other)
  Sender: FDA-Public Use
  Company Number: GB-GLAXOSMITHKLINE-B0382117A

PATIENT

DRUGS (4)
  1. COMBIVIR [Suspect]
     Indication: HIV INFECTION
     Route: 048
  2. EFAVIRENZ [Concomitant]
     Route: 065
  3. METFORMIN [Concomitant]
     Route: 065
  4. FENOFIBRATE [Concomitant]
     Route: 065

REACTIONS (1)
  - MACROCYTOSIS [None]
